FAERS Safety Report 9266530 (Version 2)
Quarter: 2013Q2

REPORT INFORMATION
  Report Type: Report from Study
  Country: DE (occurrence: DE)
  Receive Date: 20130502
  Receipt Date: 20130513
  Transmission Date: 20140414
  Serious: Yes (Life-Threatening, Hospitalization, Other)
  Sender: FDA-Public Use
  Company Number: DE-ROCHE-1217617

PATIENT
  Age: 75 Year
  Sex: Male
  Weight: 75.6 kg

DRUGS (5)
  1. METHOXY POLYETHYLENE GLYCOL-EPOETIN BETA [Suspect]
     Indication: NEPHROGENIC ANAEMIA
     Dosage: LAST DOSE PRIOR TO SAES : 11/JAN/2013, 15/MAR/2013
     Route: 058
     Dates: start: 20101007
  2. TAZOBAC [Suspect]
     Indication: PRODUCT USED FOR UNKNOWN INDICATION
     Route: 065
  3. LASIX [Suspect]
     Indication: PRODUCT USED FOR UNKNOWN INDICATION
     Route: 065
  4. HEPARIN [Suspect]
     Indication: PRODUCT USED FOR UNKNOWN INDICATION
     Route: 065
  5. STAPHYLEX [Concomitant]
     Route: 065
     Dates: start: 20130208, end: 20130215

REACTIONS (12)
  - Aortic aneurysm [Not Recovered/Not Resolved]
  - Renal failure acute [Recovered/Resolved]
  - Infection [Recovered/Resolved]
  - Dyspnoea at rest [Recovered/Resolved]
  - Orthopnoea [Recovered/Resolved]
  - Asthenia [Recovered/Resolved]
  - Pleural effusion [Recovered/Resolved]
  - Dyspnoea [Recovering/Resolving]
  - Cardiomegaly [Unknown]
  - Mitral valve incompetence [Unknown]
  - Tricuspid valve incompetence [Unknown]
  - Respiratory tract congestion [Unknown]
